FAERS Safety Report 5363756-X (Version None)
Quarter: 2007Q2

REPORT INFORMATION
  Report Type: 
  Country: None (occurrence: None)
  Receive Date: 20070618
  Receipt Date: 20070618
  Transmission Date: 20071010
  Serious: Yes (Hospitalization)
  Sender: FDA-Public Use
  Company Number: None

PATIENT
  Age: 24 Year
  Sex: Female

DRUGS (2)
  1. LINEZOLID [Suspect]
     Indication: DISEASE RECURRENCE
  2. LINEZOLID [Suspect]
     Indication: URINARY TRACT INFECTION

REACTIONS (1)
  - PANCREATITIS ACUTE [None]
